FAERS Safety Report 7821535-5 (Version None)
Quarter: 2011Q4

REPORT INFORMATION
  Report Type: 
  Country: None (occurrence: None)
  Receive Date: 20111018
  Receipt Date: 20111012
  Transmission Date: 20120403
  Serious: Yes (Hospitalization)
  Sender: FDA-Public Use
  Company Number: GB-AMGEN-GBRCT2011052976

PATIENT
  Age: 65 Year
  Sex: Male

DRUGS (14)
  1. CAPECITABINE [Concomitant]
     Indication: GASTROOESOPHAGEAL CANCER
     Dosage: UNK
     Dates: start: 20110822
  2. RAMIPRIL [Concomitant]
     Dosage: 5 MG, UNK
  3. ZOPLICONE [Concomitant]
     Indication: INSOMNIA
  4. MORPHINE [Concomitant]
     Indication: PAIN
     Dosage: 100 MG, BID
     Dates: start: 20110821
  5. PANITUMUMAB [Suspect]
     Indication: GASTROOESOPHAGEAL CANCER
     Dosage: UNK
     Dates: start: 20110822
  6. FERROUS SULFATE TAB [Concomitant]
  7. ACETAMINOPHEN AND CODEINE PHOSPHATE [Concomitant]
  8. LANSOPRAZOLE [Concomitant]
     Indication: DYSPEPSIA
  9. METHOTREXATE [Concomitant]
     Indication: RHEUMATOID ARTHRITIS
     Dosage: UNK UNK, QWK
  10. FOLIC ACID [Concomitant]
  11. ORAMORPH SR [Concomitant]
     Indication: PAIN
  12. OXALIPLATIN [Concomitant]
     Indication: GASTROOESOPHAGEAL CANCER
     Dosage: UNK
     Dates: start: 20110822
  13. EPIRUBICIN [Concomitant]
     Indication: GASTROOESOPHAGEAL CANCER
     Dosage: UNK
     Dates: start: 20110822
  14. TRAMADOL HCL [Concomitant]
     Indication: PAIN
     Dosage: 50 MG, UNK

REACTIONS (3)
  - VOMITING [None]
  - FEBRILE NEUTROPENIA [None]
  - DIARRHOEA [None]
